FAERS Safety Report 16598696 (Version 1)
Quarter: 2019Q3

REPORT INFORMATION
  Report Type: Spontaneous
  Country: US (occurrence: US)
  Receive Date: 20190719
  Receipt Date: 20190719
  Transmission Date: 20191004
  Serious: Yes (Other)
  Sender: FDA-Public Use
  Company Number: US-ALVOGEN-2019-ALVOGEN-100557

PATIENT
  Age: 40 Year
  Sex: Female

DRUGS (1)
  1. FLUOCINONIDE. [Suspect]
     Active Substance: FLUOCINONIDE
     Indication: MUCOSAL INFLAMMATION
     Dosage: FOR 1 MONTH

REACTIONS (1)
  - Chorioretinopathy [Recovered/Resolved]
